FAERS Safety Report 21217928 (Version 1)
Quarter: 2022Q3

REPORT INFORMATION
  Report Type: Spontaneous
  Country: US (occurrence: None)
  Receive Date: 20220816
  Receipt Date: 20220816
  Transmission Date: 20221027
  Serious: No
  Sender: FDA-Public Use
  Company Number: US-ROCHE-2879432

PATIENT
  Sex: Female
  Weight: 100.33 kg

DRUGS (2)
  1. PEGASYS [Suspect]
     Active Substance: PEGINTERFERON ALFA-2A
     Indication: Myeloproliferative neoplasm
     Dosage: 45MCG (0.25CC) ONCE A WEEK ;ONGOING: NO
     Route: 058
     Dates: start: 20210416, end: 20210618
  2. PEGASYS [Suspect]
     Active Substance: PEGINTERFERON ALFA-2A
     Indication: Essential thrombocythaemia
     Dosage: 90MCG (0.5CC) ONCE A WEEK ;ONGOING: YES
     Route: 058
     Dates: start: 20210618

REACTIONS (2)
  - Platelet count increased [Unknown]
  - Off label use [Unknown]
